FAERS Safety Report 7828446-X (Version None)
Quarter: 2011Q4

REPORT INFORMATION
  Report Type: 
  Country: None (occurrence: None)
  Receive Date: 20111020
  Receipt Date: 20111010
  Transmission Date: 20120403
  Serious: Yes (Hospitalization)
  Sender: FDA-Public Use
  Company Number: US-BAYER-200923321NA

PATIENT
  Age: 43 Year
  Sex: Female
  Weight: 85 kg

DRUGS (17)
  1. SINGULAIR [Concomitant]
     Dosage: 10 MG (DAILY DOSE), HS, ORAL
     Route: 048
  2. LOVAZA [Concomitant]
     Dosage: 1000 MG (DAILY DOSE), BID, ORAL
     Route: 048
  3. NAPROXEN [Concomitant]
  4. POTASSIUM [Concomitant]
  5. DROSPIRENONE AND ETHINYL ESTRADIOL [Suspect]
     Indication: PREMENSTRUAL SYNDROME
     Dosage: UNK
     Route: 048
     Dates: start: 20040101, end: 20100301
  6. DROSPIRENONE AND ETHINYL ESTRADIOL [Suspect]
     Indication: HORMONE THERAPY
  7. METOPROLOL TARTRATE [Concomitant]
     Indication: PALPITATIONS
  8. YASMIN [Suspect]
     Indication: PREMENSTRUAL SYNDROME
     Dosage: 1 DF (DAILY DOSE), QD, ORAL
     Route: 048
     Dates: start: 20040101, end: 20100301
  9. YASMIN [Suspect]
     Indication: HORMONE THERAPY
  10. METOPROLOL TARTRATE [Concomitant]
     Indication: ARRHYTHMIA
     Dosage: 50 MG (DAILY DOSE), BID, ORAL
     Route: 048
     Dates: start: 20050101
  11. NITROGLYCERIN [Concomitant]
     Dosage: 0.4 MG (DAILY DOSE), PRN, SUBLINGUAL
     Route: 060
  12. ASPIRIN [Concomitant]
     Dosage: 81 MG (DAILY DOSE), QD, ORAL
     Route: 048
  13. LEXAPRO [Concomitant]
     Indication: DEPRESSION
     Dosage: 20 MG (DAILY DOSE), QD, ORAL
     Route: 048
     Dates: start: 20050101
  14. VERAPAMIL [Concomitant]
     Dosage: 120 MG (DAILY DOSE), QD, ORAL
     Route: 048
  15. LEXAPRO [Concomitant]
     Indication: ANXIETY
  16. MOMETASONE FUROATE [Concomitant]
     Dosage: ONE PUFF
  17. PRAVACHOL [Concomitant]

REACTIONS (11)
  - CORONARY ARTERY DISEASE [None]
  - ANXIETY [None]
  - CHEST PAIN [None]
  - HYPOAESTHESIA [None]
  - PALPITATIONS [None]
  - DYSPNOEA [None]
  - FATIGUE [None]
  - ARRHYTHMIA [None]
  - VENTRICULAR EXTRASYSTOLES [None]
  - DIZZINESS [None]
  - HEART RATE IRREGULAR [None]
